FAERS Safety Report 14275168 (Version 1)
Quarter: 2017Q4

REPORT INFORMATION
  Report Type: Spontaneous
  Country: JP (occurrence: JP)
  Receive Date: 20171211
  Receipt Date: 20171211
  Transmission Date: 20180321
  Serious: Yes (Life-Threatening, Other)
  Sender: FDA-Public Use
  Company Number: JP-OTSUKA-JP-2014-18640

PATIENT

DRUGS (27)
  1. ZYPREXA [Suspect]
     Active Substance: OLANZAPINE
     Dosage: 15 MG/DAY
     Route: 048
     Dates: start: 20141122
  2. OLANZAPINE. [Suspect]
     Active Substance: OLANZAPINE
     Dosage: 10 MG, QD
     Route: 048
     Dates: start: 20141011, end: 20141121
  3. VEGETAMIN B [Concomitant]
     Active Substance: CHLORPROMAZINE HYDROCHLORIDE\PHENOBARBITAL\PROMETHAZINE
     Indication: PRODUCT USED FOR UNKNOWN INDICATION
     Dosage: 1 DF/DAY
     Route: 048
     Dates: start: 20140714
  4. ABILIFY [Suspect]
     Active Substance: ARIPIPRAZOLE
     Indication: SCHIZOPHRENIA
     Dosage: 30 MG/DAY
     Route: 048
     Dates: start: 20131226, end: 20140919
  5. DAIKENTYUTO [Suspect]
     Active Substance: HERBALS
     Dosage: 7.5 G/DAY
     Route: 048
     Dates: end: 20140908
  6. DAIKENTYUTO [Suspect]
     Active Substance: HERBALS
     Dosage: 15 G/DAY
     Route: 048
     Dates: start: 20140926, end: 20141212
  7. OLANZAPINE. [Suspect]
     Active Substance: OLANZAPINE
     Indication: SCHIZOPHRENIA
     Dosage: 20 MG, QD
     Route: 048
     Dates: start: 20090515
  8. MAGMITT [Concomitant]
     Active Substance: MAGNESIUM OXIDE
     Dosage: 1980 MG/DAY
     Route: 048
     Dates: start: 20141213
  9. ABILIFY [Suspect]
     Active Substance: ARIPIPRAZOLE
     Dosage: 30 MG/DAY
     Route: 048
     Dates: start: 20111211, end: 20120223
  10. ABILIFY [Suspect]
     Active Substance: ARIPIPRAZOLE
     Dosage: 12 MG/DAY
     Route: 048
     Dates: start: 20141108, end: 20141121
  11. OLANZAPINE. [Suspect]
     Active Substance: OLANZAPINE
     Dosage: 15 MG, QD
     Route: 048
     Dates: start: 20141122
  12. ABILIFY [Suspect]
     Active Substance: ARIPIPRAZOLE
     Dosage: 24 MG/DAY
     Route: 048
     Dates: start: 20140920, end: 20141024
  13. ABILIFY [Suspect]
     Active Substance: ARIPIPRAZOLE
     Dosage: 6 MG/DAY
     Route: 048
     Dates: start: 20141122, end: 20141205
  14. ZYPREXA [Suspect]
     Active Substance: OLANZAPINE
     Dosage: 10-20 MG/DAY
     Route: 048
     Dates: start: 20111115, end: 20140926
  15. ZYPREXA [Suspect]
     Active Substance: OLANZAPINE
     Dosage: 15 MG/DAY
     Route: 048
     Dates: start: 20140927, end: 20141010
  16. DAIKENTYUTO [Suspect]
     Active Substance: HERBALS
     Indication: CONSTIPATION
     Dosage: 15 G/DAY
     Route: 048
     Dates: start: 20111203
  17. DAIKENTYUTO [Suspect]
     Active Substance: HERBALS
     Dosage: 7.5 G/DAY
     Route: 048
     Dates: start: 20140918, end: 20140925
  18. NITRAZEPAM [Concomitant]
     Active Substance: NITRAZEPAM
     Indication: PRODUCT USED FOR UNKNOWN INDICATION
     Dosage: 10 MG/DAY
     Route: 048
     Dates: start: 20131225
  19. ABILIFY [Suspect]
     Active Substance: ARIPIPRAZOLE
     Dosage: 18 MG/DAY
     Route: 048
     Dates: start: 20141025, end: 20141107
  20. ZYPREXA [Suspect]
     Active Substance: OLANZAPINE
     Indication: SCHIZOPHRENIA
     Dosage: 20 MG, QD
     Route: 048
     Dates: start: 20090515
  21. ZYPREXA [Suspect]
     Active Substance: OLANZAPINE
     Dosage: 10 MG/DAY
     Route: 048
     Dates: start: 20141011, end: 20141121
  22. OLANZAPINE. [Suspect]
     Active Substance: OLANZAPINE
     Dosage: 15 MG, QD
     Route: 048
     Dates: start: 20140927, end: 20141010
  23. MAGMITT [Concomitant]
     Active Substance: MAGNESIUM OXIDE
     Indication: PRODUCT USED FOR UNKNOWN INDICATION
     Dosage: 990 MG/DAY
     Route: 048
     Dates: start: 20120517, end: 20141212
  24. ABILIFY [Suspect]
     Active Substance: ARIPIPRAZOLE
     Indication: SCHIZOPHRENIA
     Dosage: 30 MG/DAY
     Route: 048
     Dates: start: 20120224, end: 20131225
  25. DAIKENTYUTO [Suspect]
     Active Substance: HERBALS
     Dosage: 15 G/DAY
     Route: 048
     Dates: start: 20140909, end: 20140917
  26. ABILIFY [Suspect]
     Active Substance: ARIPIPRAZOLE
     Indication: SCHIZOPHRENIA
     Dosage: 12 MG/DAY
     Route: 048
     Dates: start: 20111203, end: 20111210
  27. OLANZAPINE. [Suspect]
     Active Substance: OLANZAPINE
     Dosage: 10-20MG/DAY
     Route: 048
     Dates: start: 20111115, end: 20140926

REACTIONS (2)
  - Neutropenia [Recovering/Resolving]
  - Thrombocytopenia [Recovered/Resolved]

NARRATIVE: CASE EVENT DATE: 20141001
